FAERS Safety Report 5046777-6 (Version None)
Quarter: 2006Q2

REPORT INFORMATION
  Report Type: 
  Country: None (occurrence: None)
  Receive Date: 20060630
  Receipt Date: 20060622
  Transmission Date: 20061013
  Serious: Yes (Death, Other)
  Sender: FDA-Public Use
  Company Number: 2006-01585

PATIENT
  Sex: Male

DRUGS (1)
  1. VELCADE [Suspect]
     Dates: end: 20060301

REACTIONS (1)
  - THROMBOCYTOPENIA [None]
